FAERS Safety Report 8041135-4 (Version None)
Quarter: 2012Q1

REPORT INFORMATION
  Report Type: 
  Country: None (occurrence: None)
  Receive Date: 20120109
  Receipt Date: 20111225
  Transmission Date: 20120608
  Serious: Yes (Hospitalization)
  Sender: FDA-Public Use
  Company Number: 201109043

PATIENT
  Sex: Male

DRUGS (1)
  1. TESTIM [Suspect]
     Indication: PRODUCT USED FOR UNKNOWN INDICATION
     Dosage: TRANSDERMAL
     Route: 062
     Dates: start: 20110701

REACTIONS (7)
  - BACK PAIN [None]
  - OEDEMA PERIPHERAL [None]
  - ABDOMINAL PAIN UPPER [None]
  - FATIGUE [None]
  - DYSPNOEA [None]
  - WEIGHT DECREASED [None]
  - BLOOD POTASSIUM DECREASED [None]
